FAERS Safety Report 4474036-9 (Version None)
Quarter: 2004Q4

REPORT INFORMATION
  Report Type: 
  Country: None (occurrence: None)
  Receive Date: 20041008
  Receipt Date: 20040921
  Transmission Date: 20050328
  Serious: Yes (Hospitalization, Other)
  Sender: FDA-Public Use
  Company Number: US_010463713

PATIENT
  Age: 50 Year
  Sex: Female
  Weight: 104 kg

DRUGS (18)
  1. HUMALOG [Suspect]
     Indication: DIABETES MELLITUS
     Dosage: 80 U/2 DAY
     Dates: start: 20000301
  2. TRICOR [Concomitant]
  3. ZESTRIL [Concomitant]
  4. XANAX [Concomitant]
  5. NEURONTIN [Concomitant]
  6. CELEBREX [Concomitant]
  7. AMBIEN [Concomitant]
  8. LIPITOR [Concomitant]
  9. IMDUR [Concomitant]
  10. AMITRIPTYLINE HCL [Concomitant]
  11. DEMADEX [Concomitant]
  12. CELEXA [Concomitant]
  13. TOPROL-XL [Concomitant]
  14. ASPIRIN [Concomitant]
  15. CLOPIDOGREL BISULFATE [Concomitant]
  16. NITROGLYCERIN [Concomitant]
  17. ZETIA [Concomitant]
  18. RABEPRAZOLE SODIUM [Concomitant]

REACTIONS (13)
  - ANXIETY [None]
  - BLOOD GLUCOSE FLUCTUATION [None]
  - CORONARY ARTERY OCCLUSION [None]
  - DEPRESSION [None]
  - DIABETIC NEUROPATHY [None]
  - GLYCOSYLATED HAEMOGLOBIN INCREASED [None]
  - INJECTION SITE HAEMORRHAGE [None]
  - INTERVERTEBRAL DISC DISORDER [None]
  - MUSCLE CRAMP [None]
  - PALPITATIONS [None]
  - PHARMACEUTICAL PRODUCT COMPLAINT [None]
  - POST PROCEDURAL COMPLICATION [None]
  - VENTRICULAR EXTRASYSTOLES [None]
